FAERS Safety Report 24443671 (Version 1)
Quarter: 2024Q4

REPORT INFORMATION
  Report Type: Spontaneous
  Country: US (occurrence: US)
  Receive Date: 20241016
  Receipt Date: 20241016
  Transmission Date: 20250114
  Serious: Yes (Other)
  Sender: ALEXION PHARMACEUTICALS
  Company Number: US-AstraZeneca-CH-00709839A

PATIENT

DRUGS (5)
  1. BYDUREON [Suspect]
     Active Substance: EXENATIDE
     Dosage: UNK
     Route: 065
  2. BYDUREON [Suspect]
     Active Substance: EXENATIDE
     Dosage: UNK
  3. BYDUREON [Suspect]
     Active Substance: EXENATIDE
     Dosage: UNK
     Route: 065
  4. BYDUREON [Suspect]
     Active Substance: EXENATIDE
     Dosage: UNK
  5. OZEMPIC [Concomitant]
     Active Substance: SEMAGLUTIDE

REACTIONS (1)
  - Weight fluctuation [Unknown]
